FAERS Safety Report 5580403-2 (Version None)
Quarter: 2008Q1

REPORT INFORMATION
  Report Type: 
  Country: None (occurrence: None)
  Receive Date: 20080103
  Receipt Date: 20071221
  Transmission Date: 20080703
  Serious: Yes (Death, Hospitalization, Other)
  Sender: FDA-Public Use
  Company Number: US-BAYER-200718516GPV

PATIENT
  Age: 60 Year
  Sex: Female

DRUGS (4)
  1. FLUDARABINE PHOSPHATE [Suspect]
     Indication: MANTLE CELL LYMPHOMA
  2. RITUXIMAB [Suspect]
     Indication: MANTLE CELL LYMPHOMA
  3. VORICONAZOLE [Concomitant]
     Indication: PROPHYLAXIS
     Dosage: TOTAL DAILY DOSE: 400 MG
     Route: 048
  4. ANIDULAFUNGIN [Concomitant]
     Indication: PROPHYLAXIS

REACTIONS (7)
  - ACUTE GRAFT VERSUS HOST DISEASE IN LIVER [None]
  - ASPERGILLOSIS [None]
  - LIVER FUNCTION TEST ABNORMAL [None]
  - NEUTROPENIA [None]
  - RENAL IMPAIRMENT [None]
  - SEPSIS SYNDROME [None]
  - SEVERE ACUTE RESPIRATORY SYNDROME [None]
